FAERS Safety Report 8545523-9 (Version None)
Quarter: 2012Q3

REPORT INFORMATION
  Report Type: 
  Country: None (occurrence: None)
  Receive Date: 20120727
  Receipt Date: 20111027
  Transmission Date: 20120928
  Serious: No
  Sender: FDA-Public Use
  Company Number: US-ASTRAZENECA-2011SE65224

PATIENT
  Age: 99 Year
  Sex: Female
  Weight: 49.9 kg

DRUGS (2)
  1. SEROQUEL [Suspect]
     Indication: DEMENTIA
     Dosage: TOTAL DAILY DOSE OF 25 MG BID
     Route: 048
     Dates: start: 20100101
  2. SYNTHROID [Concomitant]

REACTIONS (3)
  - LACERATION [None]
  - OFF LABEL USE [None]
  - ACCIDENT AT HOME [None]
